FAERS Safety Report 5068389-0 (Version None)
Quarter: 2006Q3

REPORT INFORMATION
  Report Type: 
  Country: None (occurrence: None)
  Receive Date: 20060802
  Receipt Date: 20050902
  Transmission Date: 20061208
  Serious: Yes (Other)
  Sender: FDA-Public Use
  Company Number: US-BRISTOL-MYERS SQUIBB COMPANY-13099353

PATIENT
  Age: 71 Year
  Sex: Male
  Weight: 79 kg

DRUGS (6)
  1. COUMADIN [Suspect]
     Indication: HEART RATE IRREGULAR
     Dosage: START RX 4-6 MONTHS AGO; WAS ON 5MG QD WITH DOSE AJUSTMENT; NOW ON 7.5MG X 5 DAYS + 5 MG X 2 DAYS
     Route: 048
     Dates: start: 20050101
  2. COUMADIN [Suspect]
     Indication: CARDIAC PACEMAKER INSERTION
     Dosage: START RX 4-6 MONTHS AGO; WAS ON 5MG QD WITH DOSE AJUSTMENT; NOW ON 7.5MG X 5 DAYS + 5 MG X 2 DAYS
     Route: 048
     Dates: start: 20050101
  3. LISINOPRIL [Concomitant]
  4. SULAR [Concomitant]
  5. ATENOLOL [Concomitant]
  6. HYDROCHLOROTHIAZIDE [Concomitant]

REACTIONS (1)
  - INTERNATIONAL NORMALISED RATIO DECREASED [None]
